FAERS Safety Report 25098293 (Version 2)
Quarter: 2025Q1

REPORT INFORMATION
  Report Type: Spontaneous
  Country: SE (occurrence: SE)
  Receive Date: 20250320
  Receipt Date: 20250326
  Transmission Date: 20250408
  Serious: Yes (Other)
  Sender: ORGANON
  Company Number: SE-ORGANON-O2503SWE001890

PATIENT
  Sex: Female
  Weight: 76 kg

DRUGS (7)
  1. NEXPLANON [Suspect]
     Active Substance: ETONOGESTREL
     Route: 059
     Dates: start: 20230308
  2. MAXALT [Concomitant]
     Active Substance: RIZATRIPTAN BENZOATE
     Dates: start: 202410
  3. ETORICOXIB [Concomitant]
     Active Substance: ETORICOXIB
     Dates: start: 202410
  4. PREGABALIN [Concomitant]
     Active Substance: PREGABALIN
     Dates: start: 202410
  5. SERTRALINE [Concomitant]
     Active Substance: SERTRALINE HYDROCHLORIDE
     Dates: start: 202410
  6. BUDESONIDE [Concomitant]
     Active Substance: BUDESONIDE
     Dates: start: 202410
  7. ATARAX [Concomitant]
     Active Substance: HYDROXYZINE HYDROCHLORIDE
     Dates: start: 202410

REACTIONS (4)
  - Pregnancy with implant contraceptive [Not Recovered/Not Resolved]
  - Unintended pregnancy [Not Recovered/Not Resolved]
  - Complication of device removal [Not Recovered/Not Resolved]
  - Product use issue [Unknown]
